FAERS Safety Report 4463140-7 (Version None)
Quarter: 2004Q3

REPORT INFORMATION
  Report Type: 
  Country: None (occurrence: None)
  Receive Date: 20040930
  Receipt Date: 20040921
  Transmission Date: 20050211
  Serious: Yes (Death)
  Sender: FDA-Public Use
  Company Number: JP-JNJFOC-20040707228

PATIENT
  Age: 60 Year
  Sex: Male

DRUGS (4)
  1. DUROTEP [Suspect]
     Indication: DRUG USE FOR UNKNOWN INDICATION
     Route: 062
     Dates: start: 20040505, end: 20040507
  2. MAGNESIUM OXIDE [Concomitant]
     Route: 049
  3. PANTETHINE [Concomitant]
  4. SENOSIDE [Concomitant]
     Route: 049

REACTIONS (3)
  - CONDITION AGGRAVATED [None]
  - MALIGNANT NEOPLASM PROGRESSION [None]
  - SOMNOLENCE [None]
